FAERS Safety Report 4791272-2 (Version None)
Quarter: 2005Q4

REPORT INFORMATION
  Report Type: 
  Country: None (occurrence: None)
  Receive Date: 20051005
  Receipt Date: 20050919
  Transmission Date: 20060501
  Serious: Yes (Death, Hospitalization)
  Sender: FDA-Public Use
  Company Number: 217488

PATIENT
  Age: 70 Year
  Sex: Male

DRUGS (3)
  1. AVASTIN [Suspect]
     Indication: COLORECTAL CANCER METASTATIC
     Dosage: 5 MG/KG, Q2W, INTRAVENOUS
     Route: 042
     Dates: start: 20050701, end: 20050825
  2. F5-FU(FLUOROURACIL) [Concomitant]
  3. LEUCOVORIN CALCIUM [Concomitant]

REACTIONS (18)
  - ACUTE MYOCARDIAL INFARCTION [None]
  - ARTERIOSCLEROSIS [None]
  - ARTERIOSCLEROSIS CORONARY ARTERY [None]
  - ASTHENIA [None]
  - BENIGN PROSTATIC HYPERPLASIA [None]
  - BLADDER HYPERTROPHY [None]
  - CARDIOMEGALY [None]
  - DIARRHOEA [None]
  - HAEMANGIOMA OF LIVER [None]
  - LEUKOPENIA [None]
  - LUNG DISORDER [None]
  - MYOCARDIAL FIBROSIS [None]
  - PULMONARY EMBOLISM [None]
  - PULMONARY INFARCTION [None]
  - PYREXIA [None]
  - SPLEEN DISORDER [None]
  - SUDDEN DEATH [None]
  - VENOUS STASIS [None]
